FAERS Safety Report 4723512-X (Version None)
Quarter: 2005Q3

REPORT INFORMATION
  Report Type: 
  Country: None (occurrence: None)
  Receive Date: 20050721
  Receipt Date: 20050721
  Transmission Date: 20060218
  Serious: No
  Sender: FDA-Public Use
  Company Number: None

PATIENT
  Sex: Female
  Weight: 44.7 kg

DRUGS (1)
  1. ZYRTEC [Suspect]
     Indication: URTICARIA
     Dosage: 10MG PO ORAL
     Route: 048

REACTIONS (5)
  - CONVULSION [None]
  - DIZZINESS [None]
  - EYE ROLLING [None]
  - HYPOTENSION [None]
  - MUSCLE TWITCHING [None]
